FAERS Safety Report 5492974-5 (Version None)
Quarter: 2007Q4

REPORT INFORMATION
  Report Type: 
  Country: None (occurrence: None)
  Receive Date: 20071023
  Receipt Date: 20071018
  Transmission Date: 20080405
  Serious: Yes (Other)
  Sender: FDA-Public Use
  Company Number: AU-BRISTOL-MYERS SQUIBB COMPANY-13942552

PATIENT
  Age: 34 Year
  Sex: Female

DRUGS (7)
  1. METHOTREXATE [Suspect]
     Indication: PUSTULAR PSORIASIS
     Route: 048
     Dates: start: 20041101
  2. HYDROXYCARBAMIDE [Suspect]
  3. RAPTIVA [Suspect]
     Indication: PUSTULAR PSORIASIS
     Route: 058
     Dates: start: 20041101
  4. CYCLOSPORINE [Suspect]
     Indication: PUSTULAR PSORIASIS
     Dates: start: 20041101
  5. MYCOPHENOLATE SODIUM [Suspect]
  6. ULTRAVIOLET THERAPY [Suspect]
  7. ALEFACEPT [Suspect]

REACTIONS (2)
  - DISSEMINATED CRYPTOCOCCOSIS [None]
  - PLEOCYTOSIS [None]
